FAERS Safety Report 5944305-1 (Version None)
Quarter: 2008Q4

REPORT INFORMATION
  Report Type: 
  Country: None (occurrence: None)
  Receive Date: 20081105
  Receipt Date: 20081029
  Transmission Date: 20090506
  Serious: Yes (Death)
  Sender: FDA-Public Use
  Company Number: CIO08018315

PATIENT
  Age: 36 Year
  Sex: Male
  Weight: 77.1 kg

DRUGS (2)
  1. NYQUIL COLD/FLU, ALCOHOL 10% PSEUDOEPHEDRINE FREE, FLAVOR UNKNOWN(PARA [Suspect]
     Indication: INSOMNIA
     Dosage: 450 ML, 1 ONLY FOR 1 DAY, ORAL
     Route: 048
     Dates: start: 20081027, end: 20081027
  2. NYQUIL COLD/FLU, PSEUDOEPHEDRINE FREE (PARACETAMOL)  325 MG, DEXTROMET [Suspect]
     Indication: INSOMNIA
     Dosage: 1 ONLY FOR 1 DAY, ORAL
     Route: 048
     Dates: start: 20081027, end: 20081027

REACTIONS (4)
  - INCORRECT DOSE ADMINISTERED [None]
  - INTENTIONAL DRUG MISUSE [None]
  - LOSS OF CONSCIOUSNESS [None]
  - VOMITING [None]
